FAERS Safety Report 10049051 (Version 3)
Quarter: 2014Q2

REPORT INFORMATION
  Report Type: Report from Study
  Country: FR (occurrence: FR)
  Receive Date: 20140331
  Receipt Date: 20140417
  Transmission Date: 20141212
  Serious: Yes (Other)
  Sender: FDA-Public Use
  Company Number: FR-ASTRAZENECA-2014SE20925

PATIENT
  Age: 379 Month
  Sex: Female
  Weight: 58 kg

DRUGS (10)
  1. XEROQUEL [Suspect]
     Indication: SCHIZOPHRENIA
     Route: 048
     Dates: start: 20130617
  2. XEROQUEL [Suspect]
     Indication: SCHIZOPHRENIA
     Route: 048
     Dates: start: 20131015
  3. XEROQUEL [Suspect]
     Indication: SCHIZOPHRENIA
     Route: 048
     Dates: start: 20140106
  4. XEROQUEL [Suspect]
     Indication: SCHIZOPHRENIA
     Route: 048
     Dates: start: 20140113, end: 20140127
  5. RISPERDAL [Concomitant]
     Route: 048
     Dates: start: 20121204
  6. XANAX [Concomitant]
     Route: 048
     Dates: start: 20130506
  7. XANAX [Concomitant]
     Route: 048
     Dates: start: 20131015
  8. XANAX [Concomitant]
     Route: 048
     Dates: start: 20140106
  9. ABILIFY [Concomitant]
     Route: 048
     Dates: start: 20130205
  10. OLANZAPINE [Concomitant]
     Route: 048
     Dates: start: 20140106

REACTIONS (2)
  - Drug ineffective [Unknown]
  - Delusion [Recovered/Resolved]
